FAERS Safety Report 20237278 (Version 1)
Quarter: 2021Q4

REPORT INFORMATION
  Report Type: Spontaneous
  Country: IT (occurrence: IT)
  Receive Date: 20211228
  Receipt Date: 20211228
  Transmission Date: 20220303
  Serious: Yes (Hospitalization)
  Sender: FDA-Public Use
  Company Number: IT-MYLANLABS-2021M1095799

PATIENT
  Sex: Female

DRUGS (6)
  1. AMIODARONE [Suspect]
     Active Substance: AMIODARONE
     Indication: Junctional ectopic tachycardia
     Dosage: 300 MILLIGRAM/SQ. METER, QD
     Route: 065
  2. AMIODARONE [Suspect]
     Active Substance: AMIODARONE
     Dosage: 350 MILLIGRAM/SQ. METER, QD
     Route: 065
  3. IVABRADINE [Suspect]
     Active Substance: IVABRADINE
     Indication: Junctional ectopic tachycardia
     Dosage: 0.25 MILLIGRAM/KILOGRAM, QD
     Route: 065
  4. IVABRADINE [Suspect]
     Active Substance: IVABRADINE
     Dosage: 0.3 MILLIGRAM/KILOGRAM, QD, ADMINISTERED AS AN OFF-LABEL COMBINATION THERAPY WITH FLECAINIDE
     Route: 065
  5. FLECAINIDE [Suspect]
     Active Substance: FLECAINIDE
     Indication: Junctional ectopic tachycardia
     Dosage: 5 MILLIGRAM/KILOGRAM, QD, ADMINISTERED AS AN OFF-LABEL COMBINATION THERAPY WITH IVABRADINE
     Route: 065
  6. PROPRANOLOL [Concomitant]
     Active Substance: PROPRANOLOL HYDROCHLORIDE
     Indication: Junctional ectopic tachycardia
     Dosage: 4 MILLIGRAM/KILOGRAM, QD
     Route: 065

REACTIONS (3)
  - Hypothyroidism [Unknown]
  - Drug ineffective [Unknown]
  - Off label use [Unknown]
